FAERS Safety Report 6517924-1 (Version None)
Quarter: 2009Q4

REPORT INFORMATION
  Report Type: 
  Country: None (occurrence: None)
  Receive Date: 20091224
  Receipt Date: 20091211
  Transmission Date: 20100525
  Serious: Yes (Other)
  Sender: FDA-Public Use
  Company Number: ES-CELGENEUS-144-21880-09120912

PATIENT
  Age: 68 Year
  Sex: Male

DRUGS (6)
  1. REVLIMID [Suspect]
     Indication: MULTIPLE MYELOMA
     Route: 048
     Dates: start: 20091126
  2. REVLIMID [Suspect]
     Indication: PLASMACYTOMA
     Route: 048
     Dates: start: 20091001
  3. REVLIMID [Suspect]
     Route: 048
     Dates: start: 20090514
  4. DEXAMETHASONE TAB [Concomitant]
     Indication: PLASMACYTOMA
     Route: 065
     Dates: start: 20091126
  5. DEXAMETHASONE TAB [Concomitant]
     Route: 065
     Dates: start: 20091001
  6. ACENOCOUMAROL [Concomitant]
     Route: 065

REACTIONS (3)
  - ADENOCARCINOMA [None]
  - ANOGENITAL DYSPLASIA [None]
  - DISEASE PROGRESSION [None]
